FAERS Safety Report 6278165-9 (Version None)
Quarter: 2009Q3

REPORT INFORMATION
  Report Type: 
  Country: None (occurrence: None)
  Receive Date: 20090722
  Receipt Date: 20090720
  Transmission Date: 20100115
  Serious: No
  Sender: FDA-Public Use
  Company Number: US-B.I. PHARMACEUTICALS,INC./RIDGEFIELD-2009-BP-07801BP

PATIENT
  Age: 65 Year
  Sex: Male

DRUGS (13)
  1. FLOMAX [Suspect]
     Indication: BENIGN PROSTATIC HYPERPLASIA
     Dosage: 0.4 MG
     Route: 048
     Dates: start: 20090601
  2. FLOMAX [Suspect]
     Indication: NOCTURIA
  3. HYTRIN [Concomitant]
     Indication: HYPERTENSION
     Dosage: 20 MG
  4. DIOVAN [Concomitant]
     Indication: HYPERTENSION
     Dosage: 320 MG
  5. TOPROL-XL [Concomitant]
     Indication: HYPERTENSION
     Dosage: 200 MG
  6. NORVASC [Concomitant]
     Indication: HYPERTENSION
     Dosage: 5 MG
  7. LASIX [Concomitant]
     Dosage: 40 MG
  8. LEVOXYL [Concomitant]
     Dosage: 100 MCG
  9. ASPIRIN [Concomitant]
  10. MULTI-VITAMIN [Concomitant]
  11. CALCIUM [Concomitant]
  12. RHINOCORT [Concomitant]
  13. GLUCOSAMINE [Concomitant]

REACTIONS (2)
  - NOCTURIA [None]
  - POLLAKIURIA [None]
